FAERS Safety Report 10078020 (Version 1)
Quarter: 2014Q2

REPORT INFORMATION
  Report Type: Spontaneous
  Country: US (occurrence: US)
  Receive Date: 20140415
  Receipt Date: 20140415
  Transmission Date: 20141212
  Serious: No
  Sender: FDA-Public Use
  Company Number: US-BIOGENIDEC-2014BI033966

PATIENT
  Age: 58 Year
  Sex: Female

DRUGS (1)
  1. TYSABRI [Suspect]
     Indication: MULTIPLE SCLEROSIS
     Route: 042
     Dates: start: 20131029

REACTIONS (3)
  - Abdominal pain upper [Not Recovered/Not Resolved]
  - Postoperative adhesion [Recovered/Resolved]
  - Nasopharyngitis [Recovered/Resolved]
